FAERS Safety Report 5536403-1 (Version None)
Quarter: 2007Q4

REPORT INFORMATION
  Report Type: 
  Country: None (occurrence: None)
  Receive Date: 20071120
  Receipt Date: 20070807
  Transmission Date: 20080405
  Serious: No
  Sender: FDA-Public Use
  Company Number: WAES 0708USA01507

PATIENT
  Sex: Male

DRUGS (2)
  1. JANUVIA [Suspect]
     Indication: BLOOD GLUCOSE
     Dosage: 100 MG/DAILY/PO
     Route: 048
  2. BYETTA [Suspect]
     Indication: DIABETES MELLITUS

REACTIONS (2)
  - INJECTION SITE HYPERSENSITIVITY [None]
  - INJECTION SITE PRURITUS [None]
